FAERS Safety Report 4381592-8 (Version None)
Quarter: 2004Q2

REPORT INFORMATION
  Report Type: 
  Country: None (occurrence: None)
  Receive Date: 20040614
  Receipt Date: 20030523
  Transmission Date: 20050107
  Serious: Yes (Other)
  Sender: FDA-Public Use
  Company Number: WAES 0305USA02578

PATIENT
  Age: 60 Year
  Sex: Female

DRUGS (8)
  1. COZAAR [Suspect]
     Indication: HYPERTENSION
     Dosage: 25 MG/DAILY/PO
     Route: 048
     Dates: start: 19980201
  2. ACIPHEX [Concomitant]
  3. ADVAIR [Concomitant]
  4. SINGULAIR [Concomitant]
  5. VIOXX [Concomitant]
  6. ASPIRIN [Concomitant]
  7. ATENOLOL [Concomitant]
  8. VITAMIN E [Concomitant]

REACTIONS (4)
  - ASTHMA [None]
  - BRONCHITIS [None]
  - COUGH [None]
  - TOTAL LUNG CAPACITY ABNORMAL [None]
